FAERS Safety Report 6531188-4 (Version None)
Quarter: 2010Q1

REPORT INFORMATION
  Report Type: 
  Country: None (occurrence: None)
  Receive Date: 20100108
  Receipt Date: 20100105
  Transmission Date: 20100710
  Serious: Yes (Other)
  Sender: FDA-Public Use
  Company Number: US-ROCHE-677807

PATIENT
  Age: 82 Year
  Sex: Female
  Weight: 56.7 kg

DRUGS (1)
  1. BONIVA [Suspect]
     Indication: OSTEOPOROSIS
     Route: 048
     Dates: start: 20050101

REACTIONS (2)
  - MACULOPATHY [None]
  - PAIN IN JAW [None]
